FAERS Safety Report 8930210 (Version 3)
Quarter: 2013Q1

REPORT INFORMATION
  Report Type: Spontaneous
  Country: US (occurrence: US)
  Receive Date: 20121128
  Receipt Date: 20130220
  Transmission Date: 20140127
  Serious: Yes (Hospitalization, Other)
  Sender: FDA-Public Use
  Company Number: US-BAYER-2012-124857

PATIENT
  Age: 53 Year
  Sex: Male
  Weight: 79.37 kg

DRUGS (2)
  1. GADAVIST [Suspect]
     Indication: INVESTIGATION
     Dosage: 5 ML, ONCE
     Route: 042
     Dates: start: 20120831, end: 20120831
  2. GADAVIST [Suspect]
     Indication: METASTASES TO CENTRAL NERVOUS SYSTEM

REACTIONS (4)
  - Pruritus [None]
  - Urticaria [None]
  - Throat irritation [None]
  - Dyspnoea [None]
